FAERS Safety Report 5357861-1 (Version None)
Quarter: 2007Q2

REPORT INFORMATION
  Report Type: 
  Country: None (occurrence: None)
  Receive Date: 20070614
  Receipt Date: 20070607
  Transmission Date: 20071010
  Serious: Yes (Hospitalization)
  Sender: FDA-Public Use
  Company Number: JP-MERCK-0706USA01535

PATIENT
  Age: 88 Year

DRUGS (2)
  1. COZAAR [Suspect]
     Route: 048
     Dates: start: 20070601, end: 20070603
  2. ALLOPURINOL [Suspect]
     Route: 048
     Dates: start: 20070529, end: 20070603

REACTIONS (2)
  - RENAL FAILURE ACUTE [None]
  - TOXIC EPIDERMAL NECROLYSIS [None]
